FAERS Safety Report 6620948-7 (Version None)
Quarter: 2010Q1

REPORT INFORMATION
  Report Type: 
  Country: None (occurrence: None)
  Receive Date: 20100309
  Receipt Date: 20100225
  Transmission Date: 20100710
  Serious: Yes (Other)
  Sender: FDA-Public Use
  Company Number: JP-BRISTOL-MYERS SQUIBB COMPANY-15002413

PATIENT
  Age: 47 Year
  Sex: Female

DRUGS (5)
  1. ABILIFY [Suspect]
     Indication: SCHIZOPHRENIA
     Dosage: 12AUG-8SEP:6MG,9SEP-6OCT:12MG,7OCT-10NOV:18MG,11NOV09-26JAN10:24MG,27JAN-2FEB:12MG(7D),3-9FEB10:6MG
     Route: 048
     Dates: start: 20090812, end: 20100209
  2. ZYPREXA [Suspect]
     Indication: SCHIZOPHRENIA
     Dosage: UNK-16OCT:20MG,17OCT-10NOV:10MG (25D),6-19JAN10:10MG(14D),20JAN10-ONG:20MG
     Route: 048
  3. WYPAX [Concomitant]
     Dosage: TABS
  4. BENZALIN [Concomitant]
     Dosage: TABS
  5. PURSENNIDE [Concomitant]
     Dosage: PURSENNIDE

REACTIONS (2)
  - HALLUCINATION, AUDITORY [None]
  - PERSECUTORY DELUSION [None]
